FAERS Safety Report 5783747-4 (Version None)
Quarter: 2008Q2

REPORT INFORMATION
  Report Type: 
  Country: None (occurrence: None)
  Receive Date: 20080605
  Receipt Date: 20080324
  Transmission Date: 20081010
  Serious: No
  Sender: FDA-Public Use
  Company Number: A0717075A

PATIENT
  Age: 32 Year
  Sex: Female
  Weight: 113 kg

DRUGS (5)
  1. ALLI [Suspect]
     Dates: start: 20080317
  2. ZOLOFT [Concomitant]
  3. MUSCLE RELAXER [Concomitant]
  4. PAIN RELIEVER [Concomitant]
  5. ANTACID TAB [Concomitant]

REACTIONS (2)
  - CONSTIPATION [None]
  - RECTAL DISCHARGE [None]
